FAERS Safety Report 14668277 (Version 1)
Quarter: 2018Q1

REPORT INFORMATION
  Report Type: Spontaneous
  Country: US (occurrence: US)
  Receive Date: 20180320
  Receipt Date: 20180320
  Transmission Date: 20180509
  Serious: Yes (Hospitalization)
  Sender: FDA-Public Use
  Company Number: None

PATIENT
  Age: 53 Year
  Sex: Female
  Weight: 121 kg

DRUGS (2)
  1. TAXOL [Suspect]
     Active Substance: PACLITAXEL
     Dates: end: 20111017
  2. CARBOPLATIN. [Suspect]
     Active Substance: CARBOPLATIN
     Dates: end: 20111017

REACTIONS (13)
  - Hypernatraemia [None]
  - Dyspnoea [None]
  - Emotional distress [None]
  - Oesophagitis [None]
  - Asthenia [None]
  - Dysphagia [None]
  - Acute kidney injury [None]
  - Weight decreased [None]
  - Oesophageal spasm [None]
  - Blood pressure increased [None]
  - Disturbance in attention [None]
  - Dehydration [None]
  - Memory impairment [None]

NARRATIVE: CASE EVENT DATE: 20130506
